FAERS Safety Report 25435680 (Version 1)
Quarter: 2025Q2

REPORT INFORMATION
  Report Type: Spontaneous
  Country: US (occurrence: US)
  Receive Date: 20250613
  Receipt Date: 20250613
  Transmission Date: 20250716
  Serious: No
  Sender: DR REDDYS
  Company Number: US-DRL-USA-USA/2025/06/008098

PATIENT
  Age: 75 Year
  Sex: Female
  Weight: 86.182 kg

DRUGS (10)
  1. CLONIDINE [Suspect]
     Active Substance: CLONIDINE
     Indication: Hypertension
     Dosage: 1ST PATCH
     Route: 062
  2. CLONIDINE [Suspect]
     Active Substance: CLONIDINE
     Dosage: 2ND PATCH
     Route: 062
  3. CLONIDINE [Suspect]
     Active Substance: CLONIDINE
     Dosage: SUBSEQUENT PATCH
     Route: 062
  4. LEVOCETIRIZINE [Suspect]
     Active Substance: LEVOCETIRIZINE
     Indication: Hypertension
     Route: 065
  5. HYDROCODONE [Concomitant]
     Active Substance: HYDROCODONE
     Indication: Back pain
     Route: 065
  6. ATENOLOL [Concomitant]
     Active Substance: ATENOLOL
     Indication: Hypertension
     Route: 065
  7. TRAZODONE HCL [Concomitant]
     Active Substance: TRAZODONE HYDROCHLORIDE
     Indication: Abdominal discomfort
     Route: 065
     Dates: start: 1996
  8. Triamcinolone Acetonide Cream USP, 0.1% [Concomitant]
     Indication: Multiple allergies
     Route: 061
  9. Triamcinolone Acetonide Cream USP, 0.1% [Concomitant]
     Indication: Rash
  10. Triamcinolone Acetonide Cream USP, 0.1% [Concomitant]
     Indication: Contusion

REACTIONS (4)
  - Malaise [Unknown]
  - Product adhesion issue [Unknown]
  - Wrong technique in product usage process [Unknown]
  - Off label use [Unknown]
